FAERS Safety Report 10089652 (Version 1)
Quarter: 2014Q2

REPORT INFORMATION
  Report Type: Spontaneous
  Country: US (occurrence: None)
  Receive Date: 20140418
  Receipt Date: 20140418
  Transmission Date: 20141212
  Serious: No
  Sender: FDA-Public Use
  Company Number: None

PATIENT
  Age: 60 Year
  Sex: Male
  Weight: 97.52 kg

DRUGS (1)
  1. DOCUSATE SODIUM [Suspect]
     Indication: CONSTIPATION
     Dosage: 1 PILL BID ORAL

REACTIONS (2)
  - Product substitution issue [None]
  - Drug ineffective [None]
